FAERS Safety Report 6175155-1 (Version None)
Quarter: 2009Q2

REPORT INFORMATION
  Report Type: 
  Country: None (occurrence: None)
  Receive Date: 20090430
  Receipt Date: 20090112
  Transmission Date: 20091009
  Serious: No
  Sender: FDA-Public Use
  Company Number: US-ASTRAZENECA-2009UW01037

PATIENT
  Age: 61 Year
  Sex: Female

DRUGS (2)
  1. NEXIUM [Suspect]
     Dosage: 20 MG
     Route: 048
  2. ACIPHEX [Concomitant]

REACTIONS (2)
  - ABDOMINAL PAIN [None]
  - CHEST DISCOMFORT [None]
